FAERS Safety Report 5415094-4 (Version None)
Quarter: 2007Q3

REPORT INFORMATION
  Report Type: 
  Country: None (occurrence: None)
  Receive Date: 20070815
  Receipt Date: 20070604
  Transmission Date: 20080115
  Serious: No
  Sender: FDA-Public Use
  Company Number: A0654127A

PATIENT
  Age: 66 Year
  Sex: Female

DRUGS (3)
  1. COREG CR [Suspect]
     Indication: ATRIAL FIBRILLATION
     Dosage: 20MG PER DAY
     Route: 048
  2. RYTHMOL [Suspect]
     Indication: ATRIAL FIBRILLATION
     Dosage: 225MG TWICE PER DAY
     Route: 048
  3. LISINOPRIL [Concomitant]

REACTIONS (4)
  - BLOOD PRESSURE INCREASED [None]
  - ELECTROCARDIOGRAM CHANGE [None]
  - MEDICATION ERROR [None]
  - PALPITATIONS [None]
